FAERS Safety Report 12598892 (Version 4)
Quarter: 2016Q3

REPORT INFORMATION
  Report Type: Spontaneous
  Country: US (occurrence: US)
  Receive Date: 20160727
  Receipt Date: 20160926
  Transmission Date: 20161109
  Serious: No
  Sender: FDA-Public Use
  Company Number: US-GLAXOSMITHKLINE-US2016103628

PATIENT
  Sex: Female

DRUGS (6)
  1. BENAZEPRIL + HYDROCHLOROTHIAZIDE [Concomitant]
     Active Substance: BENAZEPRIL HYDROCHLORIDE\HYDROCHLOROTHIAZIDE
  2. MOBIC [Concomitant]
     Active Substance: MELOXICAM
  3. NORVASC [Concomitant]
     Active Substance: AMLODIPINE BESYLATE
  4. PREMARIN [Concomitant]
     Active Substance: ESTROGENS, CONJUGATED
  5. ADVAIR DISKUS [Suspect]
     Active Substance: FLUTICASONE PROPIONATE\SALMETEROL XINAFOATE
     Indication: PRODUCT USED FOR UNKNOWN INDICATION
     Dosage: 1 PUFF(S), BID
     Route: 055
     Dates: start: 2014
  6. PROAIR HFA [Concomitant]
     Active Substance: ALBUTEROL SULFATE

REACTIONS (5)
  - Product quality issue [Unknown]
  - Chest discomfort [Unknown]
  - Device use error [Unknown]
  - Dyspnoea [Unknown]
  - Medication error [Unknown]
